FAERS Safety Report 15289185 (Version 1)
Quarter: 2018Q3

REPORT INFORMATION
  Report Type: Spontaneous
  Country: NZ (occurrence: NZ)
  Receive Date: 20180803
  Receipt Date: 20180803
  Transmission Date: 20181010
  Serious: Yes (Life-Threatening, Disabling)
  Sender: FDA-Public Use
  Company Number: None

PATIENT
  Age: 14 Year
  Sex: Female
  Weight: 41 kg

DRUGS (8)
  1. FEMIDODINE [Concomitant]
  2. SUBUTMOL [Concomitant]
  3. MONTELUKAST [Suspect]
     Active Substance: MONTELUKAST SODIUM
     Indication: ASTHMA
     Dosage: ?          QUANTITY:1 TABLET(S);?
     Route: 048
  4. LARATIDINE [Concomitant]
  5. MALATONIN [Concomitant]
  6. SMYBICORT [Concomitant]
  7. PATONAL [Concomitant]
  8. NALCROM [Concomitant]
     Active Substance: CROMOLYN SODIUM

REACTIONS (6)
  - Anxiety [None]
  - Suicidal ideation [None]
  - Depression [None]
  - Aggression [None]
  - Memory impairment [None]
  - Obsessive-compulsive disorder [None]

NARRATIVE: CASE EVENT DATE: 20180801
